FAERS Safety Report 7106892-X (Version None)
Quarter: 2010Q4

REPORT INFORMATION
  Report Type: 
  Country: None (occurrence: None)
  Receive Date: 20101116
  Receipt Date: 20101104
  Transmission Date: 20110411
  Serious: No
  Sender: FDA-Public Use
  Company Number: US-ABBOTT-10P-163-0683230-00

PATIENT
  Sex: Male
  Weight: 113.5 kg

DRUGS (3)
  1. SIMCOR [Suspect]
     Indication: ILL-DEFINED DISORDER
     Dosage: 500/20
     Dates: start: 20100904
  2. PROCARDIA XL [Concomitant]
     Indication: PRODUCT USED FOR UNKNOWN INDICATION
     Dosage: 60 MG
  3. ASPIRIN [Concomitant]
     Indication: PRODUCT USED FOR UNKNOWN INDICATION
     Dosage: DAILY

REACTIONS (1)
  - FLUSHING [None]
